FAERS Safety Report 9951622 (Version 1)
Quarter: 2014Q1

REPORT INFORMATION
  Report Type: Report from Study
  Country: US (occurrence: US)
  Receive Date: 20140304
  Receipt Date: 20140304
  Transmission Date: 20141002
  Serious: Yes (Other)
  Sender: FDA-Public Use
  Company Number: US-ABBVIE-13P-163-1079194-00

PATIENT
  Sex: Male

DRUGS (3)
  1. HUMIRA [Suspect]
     Indication: PSORIASIS
     Route: 058
  2. SULFAMETHOXAZOLE [Concomitant]
     Indication: URINARY TRACT DISORDER
  3. VARIOUS CREAMS [Concomitant]
     Indication: PSORIASIS

REACTIONS (1)
  - Prostate cancer [Not Recovered/Not Resolved]
